FAERS Safety Report 21763513 (Version 1)
Quarter: 2022Q4

REPORT INFORMATION
  Report Type: Spontaneous
  Country: JP (occurrence: JP)
  Receive Date: 20221221
  Receipt Date: 20221221
  Transmission Date: 20230113
  Serious: Yes (Hospitalization)
  Sender: FDA-Public Use
  Company Number: JP-MTPC-MTPC2022-0034419

PATIENT
  Age: 69 Year
  Sex: Female

DRUGS (3)
  1. REMICADE [Suspect]
     Active Substance: INFLIXIMAB
     Indication: Rheumatoid arthritis
     Dosage: 3 MILLIGRAM/KILOGRAM, QD
     Route: 041
     Dates: start: 20221201, end: 20221201
  2. ETANERCEPT [Concomitant]
     Active Substance: ETANERCEPT
     Dosage: UNK
     Route: 065
     Dates: start: 2012
  3. RHEUMATREX [Concomitant]
     Active Substance: METHOTREXATE SODIUM
     Indication: Rheumatoid arthritis
     Dosage: UNK
     Route: 048

REACTIONS (1)
  - Compression fracture [Not Recovered/Not Resolved]

NARRATIVE: CASE EVENT DATE: 20221213
